FAERS Safety Report 18923348 (Version 3)
Quarter: 2021Q1

REPORT INFORMATION
  Report Type: Spontaneous
  Country: CH (occurrence: CH)
  Receive Date: 20210222
  Receipt Date: 20210323
  Transmission Date: 20210420
  Serious: Yes (Life-Threatening)
  Sender: FDA-Public Use
  Company Number: CH-NODEN PHARMA DAC-NOD-2021-000009

PATIENT
  Age: 86 Year
  Sex: Female

DRUGS (1)
  1. RASILEZ [Suspect]
     Active Substance: ALISKIREN
     Indication: BLOOD PRESSURE MEASUREMENT
     Dosage: 300 MILLIGRAM, ONE TABLET IN THE MORNING
     Route: 048
     Dates: end: 20200420

REACTIONS (2)
  - Cerebrovascular accident [Unknown]
  - Cerebral vasoconstriction [Unknown]

NARRATIVE: CASE EVENT DATE: 202004
